FAERS Safety Report 19606469 (Version 1)
Quarter: 2021Q3

REPORT INFORMATION
  Report Type: Spontaneous
  Country: GB (occurrence: GB)
  Receive Date: 20210725
  Receipt Date: 20210725
  Transmission Date: 20211014
  Serious: Yes (Other)
  Sender: FDA-Public Use
  Company Number: GB-DEXPHARM-20211172

PATIENT
  Age: 81 Year
  Sex: Male
  Weight: 109.76 kg

DRUGS (11)
  1. APIXABAN [Concomitant]
     Active Substance: APIXABAN
  2. OXYBUTYNIN. [Concomitant]
     Active Substance: OXYBUTYNIN CHLORIDE
  3. VITAMIN D [Concomitant]
     Active Substance: VITAMIN D NOS
  4. OMEPRAZOLE. [Suspect]
     Active Substance: OMEPRAZOLE
     Route: 050
     Dates: start: 20210701, end: 20210705
  5. BISOPROLOL FUMARATE. [Concomitant]
     Active Substance: BISOPROLOL FUMARATE
  6. SANATOGEN [Concomitant]
  7. GLUCOSAMINE SULPHATE [Concomitant]
     Active Substance: GLUCOSAMINE
  8. FINASTERIDE. [Concomitant]
     Active Substance: FINASTERIDE
  9. SEVEN SEAS COD LIVER OIL [Concomitant]
  10. TAMSULOSIN HYDROCHLORIDE. [Concomitant]
     Active Substance: TAMSULOSIN HYDROCHLORIDE
  11. PRAVASTATIN SODIUM. [Concomitant]
     Active Substance: PRAVASTATIN SODIUM

REACTIONS (1)
  - Diarrhoea [Not Recovered/Not Resolved]

NARRATIVE: CASE EVENT DATE: 20210705
